FAERS Safety Report 5710171-2 (Version None)
Quarter: 2008Q2

REPORT INFORMATION
  Report Type: 
  Country: None (occurrence: None)
  Receive Date: 20080418
  Receipt Date: 20071204
  Transmission Date: 20081010
  Serious: No
  Sender: FDA-Public Use
  Company Number: US-ASTRAZENECA-2007UW27600

PATIENT
  Age: 67 Year
  Sex: Female
  Weight: 113.9 kg

DRUGS (9)
  1. METOPROLOL SUCCINATE [Suspect]
     Route: 048
  2. METFORMIN HCL [Concomitant]
  3. AVANDIA [Concomitant]
  4. VASOTEC [Concomitant]
  5. SYNTHROID [Concomitant]
  6. PERSANTINE [Concomitant]
  7. ASPIRIN [Concomitant]
  8. TYLENOL EXTRA-STRENGTH [Concomitant]
  9. XANAX [Concomitant]

REACTIONS (4)
  - AMNESIA [None]
  - FEELING HOT [None]
  - MUSCULAR WEAKNESS [None]
  - OEDEMA PERIPHERAL [None]
